FAERS Safety Report 7439332-1 (Version None)
Quarter: 2011Q2

REPORT INFORMATION
  Report Type: 
  Country: None (occurrence: None)
  Receive Date: 20110427
  Receipt Date: 20110425
  Transmission Date: 20111010
  Serious: No
  Sender: FDA-Public Use
  Company Number: US-PFIZER INC-2011089509

PATIENT
  Sex: Female
  Weight: 63.492 kg

DRUGS (3)
  1. SIMVASTATIN [Concomitant]
     Indication: BLOOD CHOLESTEROL ABNORMAL
     Dosage: 20 MG, 1X/DAY
  2. CHANTIX [Suspect]
     Indication: SMOKING CESSATION THERAPY
     Dosage: UNK MG, 1X/DAY
     Route: 048
     Dates: start: 20110404, end: 20110401
  3. CHANTIX [Suspect]
     Dosage: 1 MG, UNK
     Dates: start: 20110401

REACTIONS (2)
  - NAUSEA [None]
  - ABDOMINAL DISCOMFORT [None]
